FAERS Safety Report 6567571-0 (Version None)
Quarter: 2010Q1

REPORT INFORMATION
  Report Type: 
  Country: None (occurrence: None)
  Receive Date: 20100202
  Receipt Date: 20100126
  Transmission Date: 20100710
  Serious: Yes (Other)
  Sender: FDA-Public Use
  Company Number: JP-GENENTECH-293294

PATIENT
  Sex: Male

DRUGS (1)
  1. GRTPA [Suspect]
     Indication: EMBOLIC STROKE
     Dosage: 37.7 ML, UNK
     Route: 042
     Dates: start: 20090423, end: 20090423

REACTIONS (1)
  - ARTERIAL OCCLUSIVE DISEASE [None]
